FAERS Safety Report 8975616 (Version 1)
Quarter: 2012Q4

REPORT INFORMATION
  Report Type: 
  Country: US (occurrence: US)
  Receive Date: 20121219
  Receipt Date: 20121219
  Transmission Date: 20130627
  Serious: No
  Sender: FDA-Public Use
  Company Number: US-AMGEN-USASP2012071255

PATIENT
  Age: 64 Year
  Sex: Female
  Weight: 75.28 kg

DRUGS (8)
  1. PROLIA [Suspect]
     Indication: OSTEOPOROSIS POSTMENOPAUSAL
     Dosage: UNK UNK, q6mo
     Route: 058
     Dates: start: 20120730
  2. SYMBICORT [Concomitant]
     Dosage: UNK
  3. VITAMINS [Concomitant]
     Dosage: UNK
  4. CALCIUM WITH VITAMIN D [Concomitant]
     Dosage: UNK
  5. ESTRACE [Concomitant]
     Dosage: UNK UNK, 3 times/wk
     Route: 067
  6. VESICARE [Concomitant]
     Dosage: 5 mg, UNK
     Route: 048
  7. CLARITIN [Concomitant]
     Dosage: UNK
     Route: 048
  8. FLEXERIL [Concomitant]
     Dosage: UNK
     Route: 048

REACTIONS (6)
  - Joint crepitation [Unknown]
  - Arthritis [Unknown]
  - Discomfort [Unknown]
  - Bruxism [Unknown]
  - Oedema peripheral [Unknown]
  - Pain in extremity [Unknown]
